FAERS Safety Report 5444743-X (Version None)
Quarter: 2007Q3

REPORT INFORMATION
  Report Type: 
  Country: None (occurrence: None)
  Receive Date: 20070906
  Receipt Date: 20070227
  Transmission Date: 20080115
  Serious: No
  Sender: FDA-Public Use
  Company Number: A0641143A

PATIENT
  Age: 16 Year
  Sex: Female

DRUGS (3)
  1. REQUIP [Suspect]
     Indication: PERIODIC LIMB MOVEMENT DISORDER
     Dosage: 1TAB PER DAY
     Route: 048
  2. ZOLOFT [Concomitant]
  3. CYTOMEL [Concomitant]

REACTIONS (1)
  - MIDDLE INSOMNIA [None]
